FAERS Safety Report 10261757 (Version 1)
Quarter: 2014Q2

REPORT INFORMATION
  Report Type: Spontaneous
  Country: FR (occurrence: FR)
  Receive Date: 20140626
  Receipt Date: 20140626
  Transmission Date: 20141212
  Serious: Yes (Hospitalization)
  Sender: FDA-Public Use
  Company Number: FR-009507513-1406FRA009448

PATIENT
  Age: 65 Year
  Sex: Female

DRUGS (4)
  1. CANCIDAS [Suspect]
     Indication: FEBRILE BONE MARROW APLASIA
     Dosage: 70 MG, ONCE
     Route: 042
     Dates: start: 20140423, end: 20140423
  2. CANCIDAS [Suspect]
     Dosage: 50 MG, QD
     Route: 042
     Dates: start: 20140424, end: 20140522
  3. TIENAM 500MG/500MG, POUDRE POUR PERFUSION [Suspect]
     Indication: FEBRILE BONE MARROW APLASIA
     Dosage: 500 MG, QID
     Route: 042
     Dates: start: 20140420, end: 20140605
  4. VANCOMYCIN [Suspect]
     Indication: FEBRILE BONE MARROW APLASIA
     Dosage: 2 G, QD
     Route: 042
     Dates: start: 20140419, end: 20140522

REACTIONS (3)
  - Rash maculo-papular [Recovering/Resolving]
  - Purpura [Recovering/Resolving]
  - Pruritus [Recovering/Resolving]
